FAERS Safety Report 5300988-0 (Version None)
Quarter: 2007Q1

REPORT INFORMATION
  Report Type: 
  Country: None (occurrence: None)
  Receive Date: 20070201
  Receipt Date: 20061220
  Transmission Date: 20070707
  Serious: No
  Sender: FDA-Public Use
  Company Number: 2006PV027218

PATIENT
  Age: 72 Year
  Sex: Female
  Weight: 81.6475 kg

DRUGS (5)
  1. BYETTA [Suspect]
     Indication: DIABETES MELLITUS NON-INSULIN-DEPENDENT
     Dosage: 5 MCG;BID;SC
     Route: 058
     Dates: start: 20061004
  2. TOPAMAX [Suspect]
     Indication: WEIGHT CONTROL
     Dosage: 100 MG;QD;PO
     Route: 048
     Dates: start: 20050101
  3. AVANDIA [Concomitant]
  4. METFORMIN HCL [Concomitant]
  5. NEXIUM [Concomitant]

REACTIONS (3)
  - ERUCTATION [None]
  - NAUSEA [None]
  - WEIGHT DECREASED [None]
